FAERS Safety Report 12757488 (Version 1)
Quarter: 2016Q3

REPORT INFORMATION
  Report Type: Spontaneous
  Country: ES (occurrence: ES)
  Receive Date: 20160919
  Receipt Date: 20160919
  Transmission Date: 20161109
  Serious: Yes (Other)
  Sender: FDA-Public Use
  Company Number: ES-ZYDUS-012077

PATIENT
  Age: 78 Year
  Sex: Male

DRUGS (7)
  1. ASCORBIC ACID/ECHINACEA/PROPOLIS [Interacting]
     Active Substance: ASCORBIC ACID\ECHINACEA\PROPOLIS WAX
     Indication: DYSPHONIA
     Route: 065
  2. CARBOPLATIN. [Interacting]
     Active Substance: CARBOPLATIN
     Indication: CHEMOTHERAPY
     Dosage: CARBOPLATIN AUC5
     Route: 065
  3. ACETYLSALICYLIC ACID [Concomitant]
     Active Substance: ASPIRIN
     Indication: PRODUCT USED FOR UNKNOWN INDICATION
     Route: 065
  4. ENALAPRIL [Concomitant]
     Active Substance: ENALAPRIL
     Indication: PRODUCT USED FOR UNKNOWN INDICATION
     Route: 065
  5. SIMVASTATIN. [Interacting]
     Active Substance: SIMVASTATIN
     Indication: PRODUCT USED FOR UNKNOWN INDICATION
     Route: 065
  6. OMEPRAZOLE. [Suspect]
     Active Substance: OMEPRAZOLE
     Indication: PRODUCT USED FOR UNKNOWN INDICATION
     Route: 065
  7. PACLITAXEL/PACLITAXEL LIPOSOME [Interacting]
     Active Substance: PACLITAXEL
     Indication: CHEMOTHERAPY
     Dosage: 175 M2 (DAY 1, 21-DAY CYCLES)
     Route: 065

REACTIONS (2)
  - Hepatotoxicity [Recovered/Resolved]
  - Drug interaction [Recovered/Resolved]
